FAERS Safety Report 16649289 (Version 1)
Quarter: 2019Q3

REPORT INFORMATION
  Report Type: Report from Study
  Country: US (occurrence: US)
  Receive Date: 20190730
  Receipt Date: 20190730
  Transmission Date: 20191004
  Serious: Yes (Hospitalization)
  Sender: FDA-Public Use
  Company Number: US-EISAI MEDICAL RESEARCH-EC-2019-059751

PATIENT
  Age: 63 Year
  Sex: Male
  Weight: 83.9 kg

DRUGS (4)
  1. ELIQUIS [Concomitant]
     Active Substance: APIXABAN
  2. PRINIVIL [Concomitant]
     Active Substance: LISINOPRIL
  3. ALLOPURINOL. [Concomitant]
     Active Substance: ALLOPURINOL
  4. LENVIMA [Suspect]
     Active Substance: LENVATINIB
     Indication: HEPATOCELLULAR CARCINOMA
     Route: 048
     Dates: start: 20190510, end: 20190704

REACTIONS (4)
  - Internal haemorrhage [Recovered/Resolved]
  - Asthenia [Recovered/Resolved]
  - Oesophageal varices haemorrhage [Recovered/Resolved]
  - Decreased appetite [Recovered/Resolved]

NARRATIVE: CASE EVENT DATE: 201907
